FAERS Safety Report 8836547 (Version 1)
Quarter: 2012Q4

REPORT INFORMATION
  Report Type: Spontaneous
  Country: US (occurrence: None)
  Receive Date: 20121009
  Receipt Date: 20121009
  Transmission Date: 20130627
  Serious: Yes (Other)
  Sender: FDA-Public Use
  Company Number: TPA2012A07599

PATIENT
  Age: 62 Year
  Sex: Male

DRUGS (2)
  1. DEXILANT [Suspect]
     Route: 048
     Dates: start: 20120615
  2. MEDROL [Concomitant]

REACTIONS (3)
  - Dysgeusia [None]
  - Vomiting [None]
  - Surgery [None]
